FAERS Safety Report 21880119 (Version 6)
Quarter: 2023Q2

REPORT INFORMATION
  Report Type: Report from Study
  Country: FR (occurrence: FR)
  Receive Date: 20230118
  Receipt Date: 20230515
  Transmission Date: 20230721
  Serious: Yes (Death, Hospitalization)
  Sender: FDA-Public Use
  Company Number: FR-002147023-NVSC2023FR010119

PATIENT
  Age: 53 Year
  Sex: Male

DRUGS (14)
  1. SPARTALIZUMAB [Suspect]
     Active Substance: SPARTALIZUMAB
     Indication: Oesophageal cancer metastatic
     Dosage: 300 MG EVERY 1 DAY
     Route: 042
     Dates: start: 20221213, end: 20221213
  2. TABRECTA [Suspect]
     Active Substance: CAPMATINIB
     Indication: Oesophageal cancer metastatic
     Dosage: 800 MG EVERY 1 DAY
     Route: 048
     Dates: start: 20221213, end: 20221223
  3. TABRECTA [Suspect]
     Active Substance: CAPMATINIB
     Dosage: 800 MG EVERY 1 DAY
     Route: 048
     Dates: start: 20221227, end: 20230105
  4. ESOMEPRAZOLE [Concomitant]
     Active Substance: ESOMEPRAZOLE
     Indication: Gastrointestinal haemorrhage
     Dosage: 40 MG EVERY 1 DAY
     Route: 048
     Dates: start: 20200101
  5. HYDROCHLOROTHIAZIDE [Concomitant]
     Active Substance: HYDROCHLOROTHIAZIDE
     Indication: Oesophageal carcinoma
     Dosage: 12.5 MG EVERY 1 DAY
     Route: 048
     Dates: start: 20211118
  6. HYDROCHLOROTHIAZIDE [Concomitant]
     Active Substance: HYDROCHLOROTHIAZIDE
     Indication: Essential hypertension
  7. ACETAMINOPHEN [Concomitant]
     Active Substance: ACETAMINOPHEN
     Indication: Oesophageal carcinoma
     Dosage: 1 G EVERY 1 DAY
     Route: 048
     Dates: start: 20220801
  8. ACETAMINOPHEN [Concomitant]
     Active Substance: ACETAMINOPHEN
     Indication: Pain
  9. IRBESARTAN [Concomitant]
     Active Substance: IRBESARTAN
     Indication: Oesophageal carcinoma
     Dosage: 300 MG EVERY 1 DAY
     Route: 048
     Dates: start: 20211118
  10. IRBESARTAN [Concomitant]
     Active Substance: IRBESARTAN
     Indication: Essential hypertension
  11. DAFALGAN CODEINE [Concomitant]
     Active Substance: ACETAMINOPHEN\CODEINE PHOSPHATE
     Indication: Back pain
     Dosage: 500 MG
     Route: 048
     Dates: start: 20220801
  12. LIDOCAINE [Concomitant]
     Active Substance: LIDOCAINE
     Indication: Pain
     Dosage: 1.0 UNK
     Route: 061
     Dates: start: 20221019
  13. EPREX [Concomitant]
     Active Substance: ERYTHROPOIETIN
     Indication: Chronic kidney disease
     Dosage: 40000 IU
     Route: 058
     Dates: start: 20220923
  14. BACLOFEN [Concomitant]
     Active Substance: BACLOFEN
     Indication: Hiccups
     Dosage: 20 MG
     Route: 048
     Dates: start: 20230102

REACTIONS (3)
  - Hepatitis fulminant [Fatal]
  - Vomiting [Recovering/Resolving]
  - Gastrointestinal haemorrhage [Not Recovered/Not Resolved]

NARRATIVE: CASE EVENT DATE: 20221223
